FAERS Safety Report 8593952 (Version 2)
Quarter: 2012Q4

REPORT INFORMATION
  Report Type: Report from Study
  Country: FR (occurrence: FR)
  Receive Date: 20120604
  Receipt Date: 20121221
  Transmission Date: 20130627
  Serious: Yes (Disabling)
  Sender: FDA-Public Use
  Company Number: FR-INCYTE CORPORATION-2012IN000746

PATIENT
  Age: 55 Year
  Sex: Female

DRUGS (2)
  1. INCB018424 [Suspect]
     Indication: MYELOFIBROSIS
     Dosage: 20 mg, bid
     Route: 048
     Dates: start: 20120119
  2. INCB018424 [Suspect]
     Dosage: 10 mg, bid
     Route: 048
     Dates: start: 20120220

REACTIONS (2)
  - Hyperaesthesia [Recovered/Resolved]
  - Thrombocytopenia [Recovered/Resolved]
